FAERS Safety Report 15628814 (Version 1)
Quarter: 2018Q4

REPORT INFORMATION
  Report Type: Report from Study
  Country: US (occurrence: US)
  Receive Date: 20181116
  Receipt Date: 20181116
  Transmission Date: 20190205
  Serious: Yes (Other)
  Sender: FDA-Public Use
  Company Number: US-ROCHE-1195832

PATIENT
  Sex: Female

DRUGS (5)
  1. PACLITAXEL. [Suspect]
     Active Substance: PACLITAXEL
     Indication: OVARIAN CANCER
     Dosage: ON DAYS 1, 8, AND 15 OF A 21-DAY CYCLE
     Route: 042
  2. PACLITAXEL. [Suspect]
     Active Substance: PACLITAXEL
     Route: 065
  3. CARBOPLATIN. [Suspect]
     Active Substance: CARBOPLATIN
     Indication: OVARIAN CANCER
     Dosage: AREA UNDER THE CURVE (AUC): 5
     Route: 042
  4. BEVACIZUMAB. [Suspect]
     Active Substance: BEVACIZUMAB
     Indication: OVARIAN CANCER
     Dosage: ON DAY 1 OF A 21-DAY CYCLE
     Route: 042
  5. PACLITAXEL. [Suspect]
     Active Substance: PACLITAXEL
     Route: 065

REACTIONS (4)
  - Embolism venous [Unknown]
  - Neutropenia [Unknown]
  - Syncope [Unknown]
  - Fatigue [Unknown]
